FAERS Safety Report 15386773 (Version 1)
Quarter: 2018Q3

REPORT INFORMATION
  Report Type: Report from Study
  Country: DO (occurrence: DO)
  Receive Date: 20180914
  Receipt Date: 20180914
  Transmission Date: 20181010
  Serious: Yes (Other)
  Sender: FDA-Public Use
  Company Number: DO-SA-2018SA247114

PATIENT
  Age: 82 Year
  Sex: Female

DRUGS (1)
  1. INSULIN GLARGINE [Suspect]
     Active Substance: INSULIN GLARGINE
     Dosage: UNK
     Route: 058
     Dates: start: 1998

REACTIONS (1)
  - Ischaemic cerebral infarction [Unknown]

NARRATIVE: CASE EVENT DATE: 201802
